FAERS Safety Report 8359365-0 (Version None)
Quarter: 2012Q2

REPORT INFORMATION
  Report Type: 
  Country: None (occurrence: None)
  Receive Date: 20120514
  Receipt Date: 20120514
  Transmission Date: 20120825
  Serious: No
  Sender: FDA-Public Use
  Company Number: None

PATIENT
  Sex: Female
  Weight: 57.6068 kg

DRUGS (1)
  1. CYMBALTA [Suspect]
     Indication: GENERALISED ANXIETY DISORDER
     Dosage: 1 1 PO
     Route: 048

REACTIONS (6)
  - INSOMNIA [None]
  - FEELING ABNORMAL [None]
  - CRYING [None]
  - NERVOUSNESS [None]
  - CONFUSIONAL STATE [None]
  - ANXIETY [None]
